FAERS Safety Report 8957217 (Version 2)
Quarter: 2013Q1

REPORT INFORMATION
  Report Type: Report from Study
  Country: US (occurrence: US)
  Receive Date: 20121210
  Receipt Date: 20130124
  Transmission Date: 20140127
  Serious: Yes (Other)
  Sender: FDA-Public Use
  Company Number: US-ROCHE-1162454

PATIENT
  Sex: 0

DRUGS (3)
  1. RITUXIMAB [Suspect]
     Indication: MANTLE CELL LYMPHOMA
     Route: 065
  2. LENALIDOMIDE [Suspect]
     Indication: MANTLE CELL LYMPHOMA
     Route: 048
  3. BORTEZOMIB [Suspect]
     Indication: MANTLE CELL LYMPHOMA
     Route: 042

REACTIONS (8)
  - Septic shock [Unknown]
  - Myocardial infarction [Unknown]
  - Thrombocytopenia [Unknown]
  - Neutropenia [Unknown]
  - Rash [Unknown]
  - Fatigue [Unknown]
  - Dehydration [Unknown]
  - Neuropathy peripheral [Unknown]
